FAERS Safety Report 4320550-6 (Version None)
Quarter: 2004Q1

REPORT INFORMATION
  Report Type: 
  Country: None (occurrence: None)
  Receive Date: 20040317
  Receipt Date: 20040306
  Transmission Date: 20041129
  Serious: Yes (Other)
  Sender: FDA-Public Use
  Company Number: 2004008798

PATIENT
  Age: 51 Year
  Sex: Female
  Weight: 68.4932 kg

DRUGS (2)
  1. GLUCOTROL XL [Suspect]
     Indication: DIABETES MELLITUS NON-INSULIN-DEPENDENT
     Dosage: 2.5 MG (DAILY) ORAL
     Route: 048
     Dates: start: 20030709, end: 20040130
  2. COLESEVELAM HYDROCHLORIDE [Concomitant]

REACTIONS (13)
  - ALANINE AMINOTRANSFERASE INCREASED [None]
  - ANTINUCLEAR ANTIBODY POSITIVE [None]
  - ASPARTATE AMINOTRANSFERASE INCREASED [None]
  - BILIRUBIN CONJUGATED INCREASED [None]
  - BLOOD ALBUMIN DECREASED [None]
  - BLOOD ALKALINE PHOSPHATASE INCREASED [None]
  - BLOOD BILIRUBIN INCREASED [None]
  - HEPATOTOXICITY [None]
  - JAUNDICE [None]
  - MALAISE [None]
  - PROTHROMBIN TIME PROLONGED [None]
  - SMOOTH MUSCLE ANTIBODY POSITIVE [None]
  - WHITE BLOOD CELL COUNT INCREASED [None]
